FAERS Safety Report 9479213 (Version 2)
Quarter: 2013Q3

REPORT INFORMATION
  Report Type: Spontaneous
  Country: JP (occurrence: JP)
  Receive Date: 20130827
  Receipt Date: 20130917
  Transmission Date: 20140515
  Serious: Yes (Other)
  Sender: FDA-Public Use
  Company Number: JP-CUBIST PHARMACEUTICALS, INC.-2013CBST000723

PATIENT
  Sex: 0

DRUGS (20)
  1. CUBICIN [Suspect]
     Indication: STAPHYLOCOCCAL SEPSIS
     Dosage: 350 MG, Q48H
     Route: 041
     Dates: start: 20130709, end: 20130721
  2. CUBICIN [Suspect]
     Indication: OFF LABEL USE
     Dosage: 5.38 MG/KG, Q48H
     Route: 041
     Dates: start: 20130709, end: 20130721
  3. UNASYN [Suspect]
     Indication: STAPHYLOCOCCAL SEPSIS
     Dosage: 3 G, BID (IV UNSPECIFIED)
     Route: 042
     Dates: start: 20130705, end: 20130709
  4. UNASYN [Suspect]
     Dosage: 3 G, ONCE DAILY (IV UNSPECIFIED)
     Route: 042
     Dates: start: 20130710, end: 20130722
  5. LASIX                              /00032601/ [Concomitant]
     Indication: OEDEMA
     Dosage: 20 MG, ONCE DAILY (IV UNSPECIFIED)
     Route: 042
     Dates: start: 20130710, end: 20130725
  6. KCL CORRECTIVE [Concomitant]
     Indication: HYPOKALAEMIA
     Dosage: 10 (UNDER 1000 UNIT), ONCE DAILY (IV UNSPECIFIED)
     Route: 042
     Dates: start: 20130711, end: 20130725
  7. NOVO HEPARIN [Concomitant]
     Indication: THROMBOSIS PROPHYLAXIS
     Dosage: 12 THOUSAND MILLION UNIT, QD (IV UNSPECIFIED)
     Route: 042
     Dates: start: 20130702, end: 20130814
  8. NOVORAPID [Concomitant]
     Indication: DIABETES MELLITUS
     Dosage: 20 UNDER 1000 UNIT, QD
     Route: 058
     Dates: start: 20130624
  9. MUCOSTA [Concomitant]
     Indication: GASTRITIS
     Dosage: 100 MG, BID
     Route: 048
  10. ADALAT [Concomitant]
     Indication: HYPERTENSION
     Dosage: 10 MG, ONCE DAILY
     Route: 048
     Dates: end: 20130722
  11. METHYCOBAL [Concomitant]
     Indication: NEUROPATHY PERIPHERAL
     Dosage: 500 MCG, BID
     Route: 048
  12. TIRASHIZIN [Concomitant]
     Indication: THYROID DISORDER
     Dosage: 50 MCG, ONCE DAILY
     Route: 048
  13. MICARDIS [Concomitant]
     Indication: DYSLIPIDAEMIA
     Dosage: 80 MG, ONCE DAILY
     Route: 048
  14. MEVALOTIN [Concomitant]
     Indication: DYSLIPIDAEMIA
     Dosage: 5 MG, ONCE DAILY
     Route: 048
  15. GASMOTIN [Concomitant]
     Indication: GASTRITIS
     Dosage: 5 MG, TID
     Route: 048
  16. ANPLAG [Concomitant]
     Indication: ARTERIAL OCCLUSIVE DISEASE
     Dosage: 100 MG, BID
     Route: 048
  17. TAKEPRON [Concomitant]
     Indication: GASTRITIS
     Dosage: 15 MG, ONCE DAILY
     Route: 048
     Dates: start: 20130706
  18. AMLODIN OD [Concomitant]
     Indication: HYPERTENSION
     Dosage: 2.5 MG, ONCE DAILY
     Route: 048
     Dates: start: 20130722
  19. ALFAROL [Concomitant]
     Indication: RENAL FAILURE CHRONIC
     Dosage: 0.25 MCG, ONCE DIALY
     Route: 048
     Dates: start: 20130722
  20. VANCOMYCIN [Concomitant]
     Indication: CELLULITIS STAPHYLOCOCCAL
     Dosage: UNK UNK, UNK
     Route: 065

REACTIONS (1)
  - Stevens-Johnson syndrome [Recovered/Resolved]
